FAERS Safety Report 7103708-2 (Version None)
Quarter: 2010Q4

REPORT INFORMATION
  Report Type: 
  Country: None (occurrence: None)
  Receive Date: 20101115
  Receipt Date: 20080523
  Transmission Date: 20110411
  Serious: No
  Sender: FDA-Public Use
  Company Number: US-KINGPHARMUSA00001-K200800615

PATIENT
  Age: 67 Year
  Sex: Female

DRUGS (5)
  1. ALTACE [Suspect]
     Indication: HYPERTENSION
     Dosage: 1/2 AMOUNT OF POWDER FROM 2.5 MG CAPSULE, ONCE
     Route: 048
     Dates: start: 20080521, end: 20080522
  2. TERAZOSIN HCL [Concomitant]
     Indication: HYPERTENSION
  3. TENORMIN [Concomitant]
  4. SYNTHROID [Concomitant]
     Indication: THYROID DISORDER
  5. LIPITOR [Concomitant]
     Indication: BLOOD CHOLESTEROL
     Dosage: UNK, UNK

REACTIONS (1)
  - TONGUE DISCOLOURATION [None]
